FAERS Safety Report 14164695 (Version 2)
Quarter: 2017Q4

REPORT INFORMATION
  Report Type: Spontaneous
  Country: US (occurrence: US)
  Receive Date: 20171107
  Receipt Date: 20171110
  Transmission Date: 20180321
  Serious: No
  Sender: FDA-Public Use
  Company Number: US-PFIZER INC-2017476015

PATIENT
  Age: 76 Year
  Sex: Female

DRUGS (3)
  1. GABAPENTIN. [Suspect]
     Active Substance: GABAPENTIN
     Indication: PAIN IN EXTREMITY
  2. GABAPENTIN. [Suspect]
     Active Substance: GABAPENTIN
     Indication: PARAESTHESIA
  3. GABAPENTIN. [Suspect]
     Active Substance: GABAPENTIN
     Indication: NEUROPATHY PERIPHERAL
     Dosage: 100 MG, 1X/DAY (BEDTIME)

REACTIONS (2)
  - Drug ineffective for unapproved indication [Unknown]
  - Dysphoria [Unknown]
